FAERS Safety Report 9785561 (Version 1)
Quarter: 2013Q4

REPORT INFORMATION
  Report Type: Spontaneous
  Country: US (occurrence: None)
  Receive Date: 20131226
  Receipt Date: 20131226
  Transmission Date: 20140711
  Serious: Yes (Other)
  Sender: FDA-Public Use
  Company Number: None

PATIENT
  Age: 70 Year
  Sex: Male
  Weight: 71.22 kg

DRUGS (2)
  1. CIPROFLOXACIN HCL [Suspect]
     Indication: CYSTITIS
     Route: 048
     Dates: start: 20131106, end: 20131125
  2. CIPROFLOXACIN HCL [Suspect]
     Indication: PROSTATITIS
     Route: 048
     Dates: start: 20131106, end: 20131125

REACTIONS (7)
  - Confusional state [None]
  - Headache [None]
  - Hypotension [None]
  - Tendon pain [None]
  - Neck pain [None]
  - Lymphadenopathy [None]
  - Arthralgia [None]
